FAERS Safety Report 6203722-5 (Version None)
Quarter: 2009Q2

REPORT INFORMATION
  Report Type: 
  Country: None (occurrence: None)
  Receive Date: 20090526
  Receipt Date: 20090526
  Transmission Date: 20091009
  Serious: No
  Sender: FDA-Public Use
  Company Number: None

PATIENT
  Age: 42 Year
  Sex: Female
  Weight: 58.0604 kg

DRUGS (1)
  1. DOXYCYLONE 100MG IVAX PHARNACEUT [Suspect]
     Indication: ACNE
     Dosage: 1 CAPSULE TWICE A DAY PO
     Route: 048
     Dates: start: 20090427, end: 20090521

REACTIONS (2)
  - FEELING OF BODY TEMPERATURE CHANGE [None]
  - PARAESTHESIA [None]
